FAERS Safety Report 9450792 (Version 1)
Quarter: 2013Q3

REPORT INFORMATION
  Report Type: Spontaneous
  Country: US (occurrence: US)
  Receive Date: 20130809
  Receipt Date: 20130809
  Transmission Date: 20140515
  Serious: No
  Sender: FDA-Public Use
  Company Number: US-AMGEN-USASP2013046684

PATIENT
  Sex: 0

DRUGS (4)
  1. NEUPOGEN [Suspect]
     Indication: PRODUCT USED FOR UNKNOWN INDICATION
     Dosage: X 5D, UNK
     Route: 065
  2. LEUCOVORIN                         /00566701/ [Concomitant]
     Dosage: UNK
  3. 5-FLUOROURACIL                     /00098801/ [Concomitant]
     Dosage: UNK
  4. OXALIPLATIN [Concomitant]
     Dosage: UNK

REACTIONS (1)
  - Drug ineffective [Unknown]
